FAERS Safety Report 5814228-7 (Version None)
Quarter: 2008Q3

REPORT INFORMATION
  Report Type: 
  Country: None (occurrence: None)
  Receive Date: 20080715
  Receipt Date: 20080701
  Transmission Date: 20090109
  Serious: Yes (Hospitalization)
  Sender: FDA-Public Use
  Company Number: 2008BI004532

PATIENT
  Age: 59 Year
  Sex: Female
  Weight: 67.1324 kg

DRUGS (2)
  1. AVONEX [Suspect]
     Indication: MULTIPLE SCLEROSIS
     Dosage: 30 UG;QW;IM
     Route: 030
     Dates: start: 19960101, end: 20030101
  2. AVONEX [Suspect]
     Indication: MULTIPLE SCLEROSIS
     Dosage: 30 UG;QW;IM
     Route: 030
     Dates: start: 20030101

REACTIONS (13)
  - ABSCESS [None]
  - ADRENAL MASS [None]
  - BREAST CANCER STAGE III [None]
  - FAT NECROSIS [None]
  - FIBROCYSTIC BREAST DISEASE [None]
  - HAEMATOMA [None]
  - HEPATIC CYST [None]
  - INFLAMMATION [None]
  - POST PROCEDURAL COMPLICATION [None]
  - PROCEDURAL PAIN [None]
  - SCAR [None]
  - SKIN ULCER [None]
  - SPINAL OSTEOARTHRITIS [None]
